FAERS Safety Report 21839227 (Version 1)
Quarter: 2023Q1

REPORT INFORMATION
  Report Type: Spontaneous
  Country: GB (occurrence: GB)
  Receive Date: 20230109
  Receipt Date: 20230109
  Transmission Date: 20230417
  Serious: Yes (Other)
  Sender: FDA-Public Use
  Company Number: None

PATIENT
  Age: 52 Year
  Sex: Male
  Weight: 83 kg

DRUGS (10)
  1. DOXYCYCLINE [Suspect]
     Active Substance: DOXYCYCLINE
     Indication: Product used for unknown indication
     Dosage: 100 MILLIGRAM (TAKE TWO ON FIRST DAY. THEN TAKE ONE DAILY FOR)
     Route: 065
     Dates: start: 20221215
  2. CETIRIZINE [Concomitant]
     Active Substance: CETIRIZINE HYDROCHLORIDE
     Indication: Allergy prophylaxis
     Dosage: 1 DOSAGE FORM, QD
     Route: 065
     Dates: start: 20221219
  3. CLARITHROMYCIN [Concomitant]
     Active Substance: CLARITHROMYCIN
     Dosage: 1 DOSAGE FORM, BID
     Route: 065
     Dates: start: 20221223, end: 20221230
  4. DERMOL [Concomitant]
     Active Substance: BENZALKONIUM CHLORIDE\CHLORHEXIDINE HYDROCHLORIDE\ISOPROPYL MYRISTATE\PARAFFIN
     Dosage: UNK, USE AS SOAP-SUBSTITUTE TO WASH WITH
     Route: 065
     Dates: start: 20220801, end: 20221117
  5. FUSIDIC ACID [Concomitant]
     Active Substance: FUSIDIC ACID
     Indication: Antibiotic therapy
     Dosage: UNK, USE 2 OR 3 TIMES PER DAY FOR
     Route: 065
     Dates: start: 20221219, end: 20221226
  6. INDAPAMIDE [Concomitant]
     Active Substance: INDAPAMIDE
     Dosage: 1 DOSAGE FORM, QD (EACH MORNING)
     Route: 065
     Dates: start: 20220801
  7. PREDNISOLONE [Concomitant]
     Active Substance: PREDNISOLONE
     Dosage: 6 DOSAGE FORM, QD
     Route: 065
     Dates: start: 20221223, end: 20221228
  8. ROSUVASTATIN [Concomitant]
     Active Substance: ROSUVASTATIN
     Dosage: 1 DOSAGE FORM, QD (EACH NIGHT)
     Route: 065
     Dates: start: 20220801
  9. TELMISARTAN [Concomitant]
     Active Substance: TELMISARTAN
     Dosage: 1 DOSAGE FORM, QD
     Route: 065
     Dates: start: 20220801
  10. UREA [Concomitant]
     Active Substance: UREA
     Indication: Dry skin
     Dosage: UNK, USE TWICE DAILY FOR DRY SKIN ON HANDS
     Route: 065
     Dates: start: 20220425

REACTIONS (1)
  - Genital exfoliation [Recovered/Resolved]
